FAERS Safety Report 25039019 (Version 1)
Quarter: 2025Q1

REPORT INFORMATION
  Report Type: Spontaneous
  Country: CA (occurrence: CA)
  Receive Date: 20250305
  Receipt Date: 20250305
  Transmission Date: 20250409
  Serious: Yes (Other)
  Sender: ALEXION PHARMACEUTICALS
  Company Number: None

PATIENT
  Age: 62 Year

DRUGS (9)
  1. CRESTOR [Suspect]
     Active Substance: ROSUVASTATIN CALCIUM
  2. AMLODIPINE [Suspect]
     Active Substance: AMLODIPINE BESYLATE
     Route: 065
  3. CANDESARTAN CILEXETIL\FELODIPINE [Suspect]
     Active Substance: CANDESARTAN CILEXETIL\FELODIPINE
     Route: 065
  4. HYDROMORPHONE [Concomitant]
     Active Substance: HYDROMORPHONE
     Route: 065
  5. OLANZAPINE [Suspect]
     Active Substance: OLANZAPINE
     Route: 065
  6. PANTOPRAZOLE [Suspect]
     Active Substance: PANTOPRAZOLE
     Route: 065
  7. PREDNISONE [Suspect]
     Active Substance: PREDNISONE
     Route: 065
  8. SENNOSIDES [Concomitant]
     Active Substance: SENNOSIDES
  9. ALBUTEROL SULFATE [Concomitant]
     Active Substance: ALBUTEROL SULFATE
     Route: 065

REACTIONS (1)
  - Febrile neutropenia [Unknown]
